FAERS Safety Report 9639719 (Version 1)
Quarter: 2013Q4

REPORT INFORMATION
  Report Type: Report from Study
  Country: US (occurrence: US)
  Receive Date: 20131023
  Receipt Date: 20131023
  Transmission Date: 20140711
  Serious: Yes (Hospitalization, Other)
  Sender: FDA-Public Use
  Company Number: US-BRISTOL-MYERS SQUIBB COMPANY-19546126

PATIENT
  Age: 57 Year
  Sex: Female
  Weight: 109.75 kg

DRUGS (13)
  1. SPRYCEL [Suspect]
  2. CARVEDILOL [Concomitant]
  3. GABAPENTIN [Concomitant]
     Indication: NEUROPATHY PERIPHERAL
  4. ALLOPURINOL [Concomitant]
     Indication: GOUT
  5. CYMBALTA [Concomitant]
     Indication: BACK PAIN
  6. JANUVIA [Concomitant]
     Indication: DIABETES MELLITUS
  7. ESTROGEN [Concomitant]
  8. CRESTOR [Concomitant]
     Indication: BLOOD CHOLESTEROL
  9. NUCYNTA [Concomitant]
     Indication: BACK PAIN
  10. AMITRIPTYLINE [Concomitant]
  11. LORTAB-5 [Concomitant]
  12. ONDANSETRON [Concomitant]
  13. LASIX [Concomitant]

REACTIONS (4)
  - Respiratory failure [Unknown]
  - Pleural effusion [Unknown]
  - Renal failure [Unknown]
  - Rash [Unknown]
